FAERS Safety Report 8971696 (Version 1)
Quarter: 2012Q4

REPORT INFORMATION
  Report Type: 
  Country: FR (occurrence: FR)
  Receive Date: 20121217
  Receipt Date: 20121217
  Transmission Date: 20130627
  Serious: Yes (Hospitalization, Other)
  Sender: FDA-Public Use
  Company Number: FR-BRISTOL-MYERS SQUIBB COMPANY-17195603

PATIENT
  Age: 42 Year
  Sex: Male

DRUGS (1)
  1. COUMADIN TABS [Suspect]
     Indication: EMBOLISM VENOUS
     Dosage: 24Jan2012
     Route: 048
     Dates: start: 20110615, end: 20120124

REACTIONS (9)
  - Road traffic accident [Unknown]
  - Rib fracture [Unknown]
  - Sternal fracture [Unknown]
  - Shock haemorrhagic [Recovered/Resolved]
  - Hepatic haematoma [Recovered/Resolved]
  - Peritoneal haemorrhage [Recovered/Resolved]
  - Haemothorax [Recovered/Resolved]
  - Pulmonary embolism [Unknown]
  - Pericardial effusion [Unknown]
